FAERS Safety Report 12733170 (Version 1)
Quarter: 2016Q3

REPORT INFORMATION
  Report Type: Spontaneous
  Country: US (occurrence: US)
  Receive Date: 20160912
  Receipt Date: 20160912
  Transmission Date: 20161109
  Serious: Yes (Hospitalization)
  Sender: FDA-Public Use
  Company Number: US-ALLERGAN-1662359US

PATIENT
  Age: 80 Year
  Sex: Female

DRUGS (3)
  1. CANASA [Suspect]
     Active Substance: MESALAMINE
     Dosage: 1 DF, Q WEEK
     Route: 054
     Dates: start: 201110
  2. CANASA [Suspect]
     Active Substance: MESALAMINE
     Indication: PROCTITIS
     Dosage: 1 DF, UNK
     Route: 054
     Dates: start: 201110
  3. CANASA [Suspect]
     Active Substance: MESALAMINE
     Dosage: 1 DF, BI-WEEKLY
     Route: 054
     Dates: start: 201110

REACTIONS (7)
  - Colostomy [Unknown]
  - Clostridium difficile infection [Unknown]
  - Hernia [Unknown]
  - Impaired healing [Not Recovered/Not Resolved]
  - Cataract [Unknown]
  - Retinal disorder [Unknown]
  - Thrombosis [Unknown]

NARRATIVE: CASE EVENT DATE: 20141230
